FAERS Safety Report 5854530-6 (Version None)
Quarter: 2008Q3

REPORT INFORMATION
  Report Type: 
  Country: None (occurrence: None)
  Receive Date: 20080822
  Receipt Date: 20070917
  Transmission Date: 20090109
  Serious: No
  Sender: FDA-Public Use
  Company Number: US-ABBOTT-07P-163-0417549-00

PATIENT
  Sex: Female
  Weight: 65.83 kg

DRUGS (2)
  1. SYNTHROID [Suspect]
     Indication: HYPOTHYROIDISM
     Route: 048
     Dates: start: 20030101
  2. ATENOLOL [Concomitant]
     Indication: HYPERTENSION
     Route: 048

REACTIONS (6)
  - ANOREXIA [None]
  - ANXIETY [None]
  - DIZZINESS [None]
  - MOOD SWINGS [None]
  - PALPITATIONS [None]
  - TEMPERATURE INTOLERANCE [None]
